FAERS Safety Report 8137856-5 (Version None)
Quarter: 2012Q1

REPORT INFORMATION
  Report Type: 
  Country: None (occurrence: None)
  Receive Date: 20120215
  Receipt Date: 20120207
  Transmission Date: 20120608
  Serious: Yes (Other)
  Sender: FDA-Public Use
  Company Number: CA-BRISTOL-MYERS SQUIBB COMPANY-16016370

PATIENT
  Age: 53 Year
  Sex: Female

DRUGS (5)
  1. METHOTREXATE [Suspect]
     Indication: RHEUMATOID ARTHRITIS
  2. PLAQUENIL [Concomitant]
  3. ORENCIA [Suspect]
     Indication: RHEUMATOID ARTHRITIS
     Dosage: LAST INF:50,28JUL11,10NOV11,10JAN12(750MG). EXP DT:JUL2013.
     Route: 042
     Dates: start: 20061124, end: 20120110
  4. PREDNISONE TAB [Suspect]
     Indication: RHEUMATOID ARTHRITIS
  5. HYDROXYCHLOROQUINE SULFATE [Concomitant]

REACTIONS (7)
  - HELICOBACTER INFECTION [None]
  - VOMITING [None]
  - EXTRANODAL MARGINAL ZONE B-CELL LYMPHOMA (MALT TYPE) [None]
  - DRUG INEFFECTIVE [None]
  - ANAEMIA [None]
  - DIZZINESS [None]
  - ASTHENIA [None]
